FAERS Safety Report 14896702 (Version 1)
Quarter: 2018Q2

REPORT INFORMATION
  Report Type: Spontaneous
  Country: US (occurrence: US)
  Receive Date: 20180427
  Receipt Date: 20180427
  Transmission Date: 20180711
  Serious: No
  Sender: FDA-Public Use
  Company Number: None

PATIENT
  Age: 67 Year
  Sex: Female

DRUGS (1)
  1. CAPECITABINE TAB 150MG [Suspect]
     Active Substance: CAPECITABINE
     Dosage: 1150 MG BID FOR 21 DAY ORAL
     Route: 048

REACTIONS (4)
  - Rash [None]
  - Pyrexia [None]
  - Abdominal pain upper [None]
  - Tongue discolouration [None]

NARRATIVE: CASE EVENT DATE: 20180406
